FAERS Safety Report 16823979 (Version 2)
Quarter: 2019Q3

REPORT INFORMATION
  Report Type: Report from Study
  Country: FR (occurrence: FR)
  Receive Date: 20190918
  Receipt Date: 20190920
  Transmission Date: 20191005
  Serious: Yes (Death, Hospitalization)
  Sender: FDA-Public Use
  Company Number: FR-ASTRAZENECA-2019SE58073

PATIENT
  Age: 76 Year
  Sex: Female

DRUGS (5)
  1. MEDI4736 [Suspect]
     Active Substance: DURVALUMAB
     Indication: NON-SMALL CELL LUNG CANCER
     Route: 042
     Dates: start: 20180516
  2. NOZINAN [Concomitant]
     Active Substance: LEVOMEPROMAZINE
     Route: 065
     Dates: start: 2017
  3. ATARAX [Concomitant]
     Active Substance: HYDROXYZINE HYDROCHLORIDE
     Route: 065
     Dates: start: 2017
  4. ZOLPIDEM [Concomitant]
     Active Substance: ZOLPIDEM TARTRATE
     Route: 065
     Dates: start: 2017
  5. PAROXETINE. [Concomitant]
     Active Substance: PAROXETINE
     Route: 065
     Dates: start: 2017

REACTIONS (1)
  - Noninfective encephalitis [Recovered/Resolved with Sequelae]

NARRATIVE: CASE EVENT DATE: 20190410
